FAERS Safety Report 9302379 (Version 1)
Quarter: 2013Q2

REPORT INFORMATION
  Report Type: Spontaneous
  Country: GB (occurrence: None)
  Receive Date: 20130516
  Receipt Date: 20130516
  Transmission Date: 20140414
  Serious: Yes (Death)
  Sender: FDA-Public Use
  Company Number: SYM-2013-03812

PATIENT
  Sex: 0

DRUGS (3)
  1. FLUOROURACIL [Suspect]
     Indication: ANAL SQUAMOUS CELL CARCINOMA
     Route: 042
  2. MITOMYCIN [Suspect]
     Indication: ANAL SQUAMOUS CELL CARCINOMA
     Dosage: 12 MG/M2, EVERY CYCLE, INTRAVENOUS BOLUS
     Route: 040
  3. THERAPEUTIC RADIOPHARMACEUTICALS (THERAPEUTIC RADIOPHARMACEUTICALS) [Suspect]
     Indication: ANAL SQUAMOUS CELL CARCINOMA
     Dosage: EVERY CYCLE, INTRAVENOUS BOLUS
     Route: 040

REACTIONS (1)
  - Neutropenic sepsis [None]
